FAERS Safety Report 7283556-3 (Version None)
Quarter: 2011Q1

REPORT INFORMATION
  Report Type: 
  Country: None (occurrence: None)
  Receive Date: 20110209
  Receipt Date: 20110204
  Transmission Date: 20110831
  Serious: Yes (Death, Hospitalization)
  Sender: FDA-Public Use
  Company Number: A0777882A

PATIENT
  Age: 59 Year
  Sex: Male
  Weight: 102.7 kg

DRUGS (6)
  1. GLUCOTROL [Concomitant]
  2. AVANDIA [Suspect]
     Indication: DIABETES MELLITUS
     Dosage: 4MG PER DAY
     Route: 048
     Dates: start: 20040101, end: 20070813
  3. TRICOR [Concomitant]
  4. LIPITOR [Concomitant]
  5. AVALIDE [Concomitant]
  6. GLUCOPHAGE [Concomitant]

REACTIONS (3)
  - CARDIO-RESPIRATORY ARREST [None]
  - MYOCARDIAL INFARCTION [None]
  - HYPOXIC-ISCHAEMIC ENCEPHALOPATHY [None]
